FAERS Safety Report 4453423-9 (Version None)
Quarter: 2004Q3

REPORT INFORMATION
  Report Type: 
  Country: None (occurrence: None)
  Receive Date: 20040920
  Receipt Date: 20040909
  Transmission Date: 20050211
  Serious: Yes (Death)
  Sender: FDA-Public Use
  Company Number: BE-JNJFOC-20040803014

PATIENT
  Age: 67 Year
  Sex: Male

DRUGS (1)
  1. PROPULSID [Suspect]
     Route: 049
     Dates: start: 20030305, end: 20040210

REACTIONS (3)
  - AMYLOIDOSIS [None]
  - CONDITION AGGRAVATED [None]
  - IMPAIRED GASTRIC EMPTYING [None]
